FAERS Safety Report 25391704 (Version 4)
Quarter: 2025Q2

REPORT INFORMATION
  Report Type: Spontaneous
  Country: ME (occurrence: ME)
  Receive Date: 20250603
  Receipt Date: 20250627
  Transmission Date: 20250716
  Serious: Yes (Death, Life-Threatening, Hospitalization, Disabling, Other)
  Sender: MERCK SHARP & DOHME LLC
  Company Number: ME-009507513-2289737

PATIENT
  Sex: Female

DRUGS (1)
  1. KEYTRUDA [Suspect]
     Active Substance: PEMBROLIZUMAB
     Indication: Malignant melanoma
     Route: 042
     Dates: start: 20250505

REACTIONS (17)
  - Guillain-Barre syndrome [Fatal]
  - Myopathy [Fatal]
  - Myositis [Recovering/Resolving]
  - Alanine aminotransferase increased [Unknown]
  - Muscular weakness [Unknown]
  - Asthenia [Recovering/Resolving]
  - Respiratory failure [Unknown]
  - Dysphagia [Recovering/Resolving]
  - Malaise [Unknown]
  - Aspartate aminotransferase increased [Unknown]
  - Troponin increased [Unknown]
  - Myasthenic syndrome [Recovering/Resolving]
  - Blood creatine phosphokinase increased [Unknown]
  - Speech disorder [Recovering/Resolving]
  - Eyelid ptosis [Recovering/Resolving]
  - Sepsis [Unknown]
  - Urinary tract infection [Unknown]

NARRATIVE: CASE EVENT DATE: 20250101
